FAERS Safety Report 5601977-9 (Version None)
Quarter: 2008Q1

REPORT INFORMATION
  Report Type: 
  Country: None (occurrence: None)
  Receive Date: 20080122
  Receipt Date: 20080110
  Transmission Date: 20080703
  Serious: Yes (Hospitalization)
  Sender: FDA-Public Use
  Company Number: 2007-03158

PATIENT
  Age: 71 Year
  Sex: Male
  Weight: 63.9 kg

DRUGS (12)
  1. VELCADE [Suspect]
     Indication: MULTIPLE MYELOMA
     Dosage: 1.30 MG/M2, INTRAVENOUS
     Route: 042
     Dates: start: 20070123, end: 20070914
  2. DOXIL [Suspect]
     Indication: MULTIPLE MYELOMA
     Dosage: 20.00 MG/M2; INTRAVENOUS
     Route: 042
     Dates: start: 20070123, end: 20070911
  3. THALIDOMIDE [Suspect]
     Indication: MULTIPLE MYELOMA
     Dosage: 200.00 MG, ORAL
     Route: 048
     Dates: start: 20070123, end: 20070916
  4. ACYCLOVIR [Concomitant]
  5. LOMOTIL (STROPINE SULFATE, DIPHENOXYLATE HYDROCHLORIDE) [Concomitant]
  6. ENULOSE [Concomitant]
  7. FENTANYL [Concomitant]
  8. MEGACE [Concomitant]
  9. OXYCODONE HCL [Concomitant]
  10. POTASSIUM (POTASSIUM) [Concomitant]
  11. SENOKOT [Concomitant]
  12. COUMADIN [Concomitant]

REACTIONS (8)
  - ANAEMIA [None]
  - CACHEXIA [None]
  - DEEP VEIN THROMBOSIS [None]
  - PAIN [None]
  - PLEURAL EFFUSION [None]
  - PNEUMONIA [None]
  - PULMONARY EMBOLISM [None]
  - THROMBOCYTOPENIA [None]
